FAERS Safety Report 6299582-7 (Version None)
Quarter: 2009Q3

REPORT INFORMATION
  Report Type: 
  Country: None (occurrence: None)
  Receive Date: 20090805
  Receipt Date: 20090805
  Transmission Date: 20100115
  Serious: Yes (Other)
  Sender: FDA-Public Use
  Company Number: None

PATIENT
  Sex: Female
  Weight: 78.2 kg

DRUGS (1)
  1. OXALIPLATIN [Suspect]
     Dosage: 105MG EVERY 2 WEEKS IV DRIP
     Route: 041
     Dates: start: 20090729, end: 20090729

REACTIONS (4)
  - CHEST DISCOMFORT [None]
  - COUGH [None]
  - THROAT IRRITATION [None]
  - WHEEZING [None]
